FAERS Safety Report 5999600-7 (Version None)
Quarter: 2008Q4

REPORT INFORMATION
  Report Type: 
  Country: None (occurrence: None)
  Receive Date: 20081211
  Receipt Date: 20081211
  Transmission Date: 20090506
  Serious: Yes (Death, Hospitalization)
  Sender: FDA-Public Use
  Company Number: None

PATIENT
  Sex: Female
  Weight: 63.5036 kg

DRUGS (1)
  1. FEMARA [Suspect]

REACTIONS (3)
  - DRUG INEFFECTIVE [None]
  - HAEMOPTYSIS [None]
  - OROPHARYNGEAL PAIN [None]
